FAERS Safety Report 5068755-3 (Version None)
Quarter: 2006Q3

REPORT INFORMATION
  Report Type: 
  Country: None (occurrence: None)
  Receive Date: 20060802
  Receipt Date: 20060317
  Transmission Date: 20061208
  Serious: Yes (Hospitalization)
  Sender: FDA-Public Use
  Company Number: US-BRISTOL-MYERS SQUIBB COMPANY-13319322

PATIENT
  Sex: Female

DRUGS (7)
  1. COUMADIN [Suspect]
     Indication: ATRIAL FIBRILLATION
  2. MOBIC [Suspect]
     Indication: SCIATICA
     Dosage: 7.5 MILLIGRAMS TWICE DAILY FOR 2 DAYS FOLLOWED BY 7.5 MILLIGRAMS DAILY FOR 3 DAYS
     Dates: start: 20051123, end: 20051127
  3. DILTIAZEM HCL [Concomitant]
  4. SYNTHROID [Concomitant]
  5. DIGITEK [Concomitant]
  6. FUROSEMIDE [Concomitant]
  7. ACETAMINOPHEN [Concomitant]

REACTIONS (2)
  - OEDEMA [None]
  - ULCER HAEMORRHAGE [None]
